FAERS Safety Report 10789740 (Version 2)
Quarter: 2015Q2

REPORT INFORMATION
  Report Type: Report from Study
  Country: KR (occurrence: KR)
  Receive Date: 20150212
  Receipt Date: 20150429
  Transmission Date: 20150821
  Serious: Yes (Hospitalization)
  Sender: FDA-Public Use
  Company Number: KR-B.I. PHARMACEUTICALS,INC./RIDGEFIELD-2015-BI-05954BI

PATIENT
  Age: 46 Year
  Sex: Female
  Weight: 55 kg

DRUGS (4)
  1. EXONIN [Concomitant]
     Indication: ARTHRITIS
     Dosage: 100 MG
     Route: 048
     Dates: start: 201101
  2. BIBF 1120 [Suspect]
     Active Substance: NINTEDANIB
     Indication: IDIOPATHIC PULMONARY FIBROSIS
     Dosage: 300 MG
     Route: 048
     Dates: start: 20121220, end: 20150130
  3. TWINSTA [Concomitant]
     Indication: HYPERTENSION
     Dosage: 1 ANZ
     Route: 048
     Dates: start: 20120519
  4. MUCOSTA [Concomitant]
     Active Substance: REBAMIPIDE
     Indication: GASTRITIS
     Dosage: 300 MG
     Route: 048
     Dates: start: 20120316

REACTIONS (1)
  - Duodenal ulcer [Recovered/Resolved]

NARRATIVE: CASE EVENT DATE: 20150130
